FAERS Safety Report 6539056-9 (Version None)
Quarter: 2010Q1

REPORT INFORMATION
  Report Type: 
  Country: None (occurrence: None)
  Receive Date: 20100115
  Receipt Date: 20100106
  Transmission Date: 20100710
  Serious: Yes (Hospitalization, Disabling, Other)
  Sender: FDA-Public Use
  Company Number: PHHY2009CA54628

PATIENT
  Sex: Female

DRUGS (5)
  1. ACLASTA [Suspect]
     Indication: OSTEOPOROSIS
     Dosage: 5 MG, UNK
     Route: 042
     Dates: start: 20081028
  2. LISINOPRIL [Concomitant]
     Dosage: 10 MG, QD
  3. OMEPRAZOLE [Concomitant]
     Dosage: 20 MG, QD
  4. BISOPROLOL FUMARATE [Concomitant]
     Dosage: 5 MG, BID
  5. TYLENOL (CAPLET) [Concomitant]

REACTIONS (3)
  - COLON CANCER [None]
  - COLOSTOMY [None]
  - INTESTINAL OBSTRUCTION [None]
